FAERS Safety Report 11409865 (Version 1)
Quarter: 2015Q3

REPORT INFORMATION
  Report Type: Spontaneous
  Country: US (occurrence: US)
  Receive Date: 20150824
  Receipt Date: 20150824
  Transmission Date: 20151125
  Serious: Yes (Other)
  Sender: FDA-Public Use
  Company Number: US-ALEXION-A201403074

PATIENT

DRUGS (2)
  1. SOLIRIS [Suspect]
     Active Substance: ECULIZUMAB
     Indication: OFF LABEL USE
  2. SOLIRIS [Suspect]
     Active Substance: ECULIZUMAB
     Indication: PRODUCT USED FOR UNKNOWN INDICATION
     Dosage: 1200 MG, Q2W
     Route: 042

REACTIONS (3)
  - Off label use [Unknown]
  - Herpes zoster [Unknown]
  - Neuromyelitis optica [Recovering/Resolving]

NARRATIVE: CASE EVENT DATE: 20140714
